FAERS Safety Report 14468040 (Version 10)
Quarter: 2018Q3

REPORT INFORMATION
  Report Type: Spontaneous
  Country: US (occurrence: US)
  Receive Date: 20180131
  Receipt Date: 20180710
  Transmission Date: 20181010
  Serious: No
  Sender: FDA-Public Use
  Company Number: US-PFIZER INC-2018039085

PATIENT
  Age: 71 Year
  Sex: Female

DRUGS (9)
  1. ADVAIR HFA [Concomitant]
     Active Substance: FLUTICASONE PROPIONATE\SALMETEROL XINAFOATE
     Dosage: 250 MG, UNK
  2. ALBUTEROL. [Concomitant]
     Active Substance: ALBUTEROL
     Indication: CHRONIC OBSTRUCTIVE PULMONARY DISEASE
     Dosage: 90 UG, AS NEEDED [THE PRODUCT SAYS 90?180 MCG EVERY 6 HOURS]
  3. IBRANCE [Suspect]
     Active Substance: PALBOCICLIB
     Dosage: 125 MG, CYCLIC (125 MG CAPSULE BY MOUTH DAILY FOR 21 DAYS)
     Route: 048
     Dates: start: 20180112, end: 20180312
  4. ALBUTEROL. [Concomitant]
     Active Substance: ALBUTEROL
     Dosage: 180 MG, AS NEEDED [THE PRODUCT SAYS 90?180 MCG EVERY 6 HOURS]
  5. FASLODEX [Suspect]
     Active Substance: FULVESTRANT
     Indication: BREAST CANCER METASTATIC
     Dosage: 500 IU, MONTHLY
     Dates: start: 20180112
  6. IBRANCE [Suspect]
     Active Substance: PALBOCICLIB
     Dosage: UNK
     Dates: start: 2018, end: 20180521
  7. ADVAIR HFA [Concomitant]
     Active Substance: FLUTICASONE PROPIONATE\SALMETEROL XINAFOATE
     Indication: PULMONARY HYPERTENSION
     Dosage: 1000 MG, DAILY (500 MG 2 PUFFS A DAY)
  8. IBRANCE [Suspect]
     Active Substance: PALBOCICLIB
     Indication: BREAST CANCER METASTATIC
     Dosage: UNK, CYCLIC
  9. ALBUTEROL. [Concomitant]
     Active Substance: ALBUTEROL
     Indication: PULMONARY HYPERTENSION
     Dosage: UNK, AS NEEDED (UP TO 4 TIMES A DAY 2 PUFFS AS NEEDED. THE PRODUCT SAYS 90?180 MCG EVERY 6 HOUR)

REACTIONS (17)
  - Muscle spasms [Unknown]
  - Infection [Unknown]
  - Asthenia [Unknown]
  - Hypertension [Unknown]
  - Body height decreased [Unknown]
  - Full blood count decreased [Recovering/Resolving]
  - Dysphonia [Unknown]
  - Speech disorder [Unknown]
  - Muscle tightness [Unknown]
  - Localised oedema [Recovering/Resolving]
  - Musculoskeletal stiffness [Unknown]
  - Neoplasm progression [Not Recovered/Not Resolved]
  - Herpes zoster [Unknown]
  - Platelet count decreased [Recovering/Resolving]
  - Dysphagia [Unknown]
  - Oedema [Not Recovered/Not Resolved]
  - Tumour marker increased [Not Recovered/Not Resolved]

NARRATIVE: CASE EVENT DATE: 201801
